FAERS Safety Report 5420070-1 (Version None)
Quarter: 2007Q3

REPORT INFORMATION
  Report Type: 
  Country: None (occurrence: None)
  Receive Date: 20070820
  Receipt Date: 20070808
  Transmission Date: 20080115
  Serious: Yes (Other)
  Sender: FDA-Public Use
  Company Number: US-PFIZER INC-2007066694

PATIENT
  Sex: Female
  Weight: 59.09 kg

DRUGS (5)
  1. NEURONTIN [Suspect]
     Indication: NEURALGIA
  2. NEURONTIN [Suspect]
     Indication: NERVE COMPRESSION
  3. LYRICA [Suspect]
     Indication: NEURALGIA
     Dates: start: 20070401, end: 20070719
  4. LYRICA [Suspect]
     Indication: NERVE COMPRESSION
  5. FOSAMAX [Concomitant]

REACTIONS (4)
  - ALOPECIA [None]
  - BREAST ENLARGEMENT [None]
  - VISION BLURRED [None]
  - VISUAL DISTURBANCE [None]
